FAERS Safety Report 4800439-6 (Version None)
Quarter: 2005Q3

REPORT INFORMATION
  Report Type: 
  Country: None (occurrence: None)
  Receive Date: 20050928
  Receipt Date: 20050916
  Transmission Date: 20060218
  Serious: Yes (Death)
  Sender: FDA-Public Use
  Company Number: 2005BH001959

PATIENT

DRUGS (1)
  1. HEPARIN SODIUM [Suspect]
     Dosage: IVBOL
     Route: 040

REACTIONS (1)
  - INCORRECT DOSE ADMINISTERED [None]
